FAERS Safety Report 8599765-7 (Version None)
Quarter: 2012Q3

REPORT INFORMATION
  Report Type: 
  Country: None (occurrence: None)
  Receive Date: 20120816
  Receipt Date: 20120806
  Transmission Date: 20120928
  Serious: No
  Sender: FDA-Public Use
  Company Number: US-ASTRAZENECA-2012SE55722

PATIENT
  Age: 32 Year
  Sex: Male
  Weight: 109.3 kg

DRUGS (16)
  1. DEPAKOTE [Concomitant]
  2. PROVENTIL-HFA [Concomitant]
  3. PROMETHAZINE-CODIENE [Concomitant]
  4. METFORMIN HCL [Concomitant]
  5. LISINOPRIL [Suspect]
     Route: 048
  6. NOVOLIN 70/30 [Concomitant]
  7. GABAPENTIN [Concomitant]
  8. SIMVASTATIN [Concomitant]
  9. NEXIUM [Suspect]
     Route: 048
  10. CLONAZEPAM [Concomitant]
  11. PREDNISONE TAB [Concomitant]
  12. CHLORPROMAZINE HCL [Concomitant]
  13. ASPIRIN [Concomitant]
  14. WELLBUTRIN [Concomitant]
  15. IBUPROFEN [Concomitant]
  16. TRAMADOL HCL [Concomitant]

REACTIONS (1)
  - BRONCHITIS [None]
